FAERS Safety Report 9835657 (Version 1)
Quarter: 2014Q1

REPORT INFORMATION
  Report Type: Spontaneous
  Country: US (occurrence: US)
  Receive Date: 20140122
  Receipt Date: 20140122
  Transmission Date: 20141002
  Serious: Yes (Hospitalization)
  Sender: FDA-Public Use
  Company Number: CHPA2014US000967

PATIENT
  Age: 70 Year
  Sex: Male

DRUGS (2)
  1. EX-LAX MAX STR LAX PILLS SENNA [Suspect]
     Indication: BOWEL MOVEMENT IRREGULARITY
     Dosage: 2 DF, QD
  2. EX-LAX REG STR LAX PILLS SENNA [Suspect]
     Indication: BOWEL MOVEMENT IRREGULARITY
     Dosage: 2 DF, QD
     Route: 048

REACTIONS (3)
  - Stomach mass [Unknown]
  - Incorrect drug administration duration [Unknown]
  - Drug ineffective [Unknown]
